FAERS Safety Report 4802767-7 (Version None)
Quarter: 2005Q4

REPORT INFORMATION
  Report Type: 
  Country: None (occurrence: None)
  Receive Date: 20051013
  Receipt Date: 20050926
  Transmission Date: 20060501
  Serious: Yes (Other)
  Sender: FDA-Public Use
  Company Number: USA0509109144

PATIENT
  Age: 78 Year
  Sex: Female

DRUGS (3)
  1. EVISTA [Suspect]
     Indication: OSTEOPOROSIS
     Dates: start: 20020101, end: 20050101
  2. FORTEO [Suspect]
     Indication: OSTEOPOROSIS
     Dates: start: 20050701
  3. ACTONEL [Concomitant]

REACTIONS (5)
  - COMPRESSION FRACTURE [None]
  - DEVICE FAILURE [None]
  - HIP ARTHROPLASTY [None]
  - INCORRECT DOSE ADMINISTERED [None]
  - PHARMACEUTICAL PRODUCT COMPLAINT [None]
